FAERS Safety Report 4450858-5 (Version None)
Quarter: 2004Q3

REPORT INFORMATION
  Report Type: 
  Country: None (occurrence: None)
  Receive Date: 20040916
  Receipt Date: 20011002
  Transmission Date: 20050211
  Serious: Yes (Other)
  Sender: FDA-Public Use
  Company Number: US-BRISTOL-MYERS SQUIBB COMPANY-11060019

PATIENT
  Sex: Male

DRUGS (2)
  1. STADOL [Suspect]
     Dosage: DURATION: MORE THAN 6 MONTHS TO 3 YEARS
     Route: 030
  2. STADOL [Suspect]
     Dosage: DURATION: MORE THAN 3 YEARS
     Route: 045

REACTIONS (2)
  - DEPENDENCE [None]
  - DRUG WITHDRAWAL SYNDROME [None]
